FAERS Safety Report 6301314-0 (Version None)
Quarter: 2009Q3

REPORT INFORMATION
  Report Type: 
  Country: None (occurrence: None)
  Receive Date: 20090805
  Receipt Date: 20090805
  Transmission Date: 20100115
  Serious: Yes (Other)
  Sender: FDA-Public Use
  Company Number: None

PATIENT
  Age: 59 Year
  Sex: Female
  Weight: 76.2043 kg

DRUGS (1)
  1. HALFLYTELY BOWEL PREP KIT BRAINTREE [Suspect]
     Indication: COLONOSCOPY
     Dates: start: 20090802, end: 20090802

REACTIONS (4)
  - CHILLS [None]
  - HYPOAESTHESIA [None]
  - PARAESTHESIA [None]
  - RHINORRHOEA [None]
